FAERS Safety Report 5730345-4 (Version None)
Quarter: 2008Q2

REPORT INFORMATION
  Report Type: 
  Country: None (occurrence: None)
  Receive Date: 20080502
  Receipt Date: 20080424
  Transmission Date: 20081010
  Serious: Yes (Hospitalization)
  Sender: FDA-Public Use
  Company Number: AZAFR200800104

PATIENT
  Age: 72 Year
  Sex: Male

DRUGS (8)
  1. VIDAZA [Suspect]
     Indication: ACUTE MYELOID LEUKAEMIA
     Dosage: (75 MG/M2, DAILY X 7 DAYS), SUBCUTANEOUS
     Route: 058
  2. DEPAKENE [Suspect]
     Indication: ACUTE MYELOID LEUKAEMIA
  3. VESANOID [Suspect]
     Indication: ACUTE MYELOID LEUKAEMIA
     Dates: start: 20070706
  4. FOLIC ACID [Concomitant]
  5. ATORVASTATIN CALCIUM [Concomitant]
  6. SERENOA REPENS     (SERENOA REPENS) [Concomitant]
  7. RAUBASINE DIHYDROERGOCRISTINE        (RAUBASINE) [Concomitant]
  8. ALLOPURINOL [Concomitant]

REACTIONS (1)
  - TYPE 1 DIABETES MELLITUS [None]
